FAERS Safety Report 8251298-3 (Version None)
Quarter: 2012Q2

REPORT INFORMATION
  Report Type: 
  Country: None (occurrence: None)
  Receive Date: 20120402
  Receipt Date: 20120323
  Transmission Date: 20120825
  Serious: Yes (Hospitalization)
  Sender: FDA-Public Use
  Company Number: US-BAYER-2012-029083

PATIENT
  Age: 36 Year
  Sex: Female

DRUGS (10)
  1. DAYQUIL [DEXTROMET HBR,GUAIF,PARACET,PSEUDOEPH HCL] [Concomitant]
     Dosage: UNK
     Route: 048
     Dates: start: 20091106
  2. NYQUIL [Concomitant]
     Dosage: UNK
     Route: 048
     Dates: start: 20091106
  3. ALKA-SELTZER [ACETYLSALICYLIC ACID,CITRIC ACID,SODIUM BICARBONATE] [Concomitant]
     Dosage: UNK
     Route: 048
     Dates: start: 20091106
  4. YASMIN [Suspect]
  5. YAZ [Suspect]
  6. DROSPIRENONE AND ETHINYL ESTRADIOL [Suspect]
  7. IBUPROFEN [Concomitant]
     Dosage: UNK
     Route: 048
     Dates: start: 20091106
  8. BIAXIN [Concomitant]
     Dosage: UNK
     Route: 048
     Dates: start: 20091211
  9. ACETAMINOPHEN [Concomitant]
  10. TAMIFLU [Concomitant]

REACTIONS (2)
  - DEEP VEIN THROMBOSIS [None]
  - PULMONARY EMBOLISM [None]
